FAERS Safety Report 8090767-6 (Version None)
Quarter: 2012Q1

REPORT INFORMATION
  Report Type: 
  Country: None (occurrence: None)
  Receive Date: 20120125
  Receipt Date: 20120111
  Transmission Date: 20120608
  Serious: Yes (Hospitalization)
  Sender: FDA-Public Use
  Company Number: DSJ-2012-00599

PATIENT
  Age: 55 Year
  Sex: Female

DRUGS (2)
  1. AMLODIPINE BESYLATE AND OLMESARTAN MEDOXOMIL [Suspect]
     Indication: HYPERTENSION
     Dosage: 40/10 MG (1 IN 1 D), PER ORAL
     Route: 048
     Dates: start: 20110901, end: 20120107
  2. HYDROCHLOROTHIAZIDE [Suspect]
     Indication: HYPERTENSION
     Dosage: 25 MG, PER ORAL
     Route: 048
     Dates: start: 20110901, end: 20120107

REACTIONS (3)
  - CARDIOMEGALY [None]
  - GENERALISED OEDEMA [None]
  - DRUG INEFFECTIVE [None]
